FAERS Safety Report 20051415 (Version 1)
Quarter: 2021Q4

REPORT INFORMATION
  Report Type: Spontaneous
  Country: US (occurrence: None)
  Receive Date: 20211110
  Receipt Date: 20211110
  Transmission Date: 20220303
  Serious: No
  Sender: FDA-Public Use
  Company Number: 2021A785611

PATIENT
  Sex: Female
  Weight: 74.4 kg

DRUGS (1)
  1. PULMICORT FLEXHALER [Suspect]
     Active Substance: BUDESONIDE
     Indication: Asthma
     Dosage: 90 UG, 1 PUFF IN AM AND 1 PUFF IN PM, TWO TIMES A DAY
     Route: 055
     Dates: start: 20211021, end: 20211022

REACTIONS (10)
  - Headache [Recovered/Resolved]
  - Tremor [Recovered/Resolved]
  - Heart rate increased [Recovered/Resolved]
  - Tremor [Recovered/Resolved]
  - Oral mucosal blistering [Not Recovered/Not Resolved]
  - Rhinorrhoea [Not Recovered/Not Resolved]
  - Nasopharyngitis [Not Recovered/Not Resolved]
  - Feeling jittery [Recovered/Resolved]
  - Oropharyngeal pain [Recovering/Resolving]
  - Insomnia [Recovered/Resolved]

NARRATIVE: CASE EVENT DATE: 20211022
